FAERS Safety Report 5965133-7 (Version None)
Quarter: 2008Q4

REPORT INFORMATION
  Report Type: 
  Country: None (occurrence: None)
  Receive Date: 20081121
  Receipt Date: 20081121
  Transmission Date: 20090506
  Serious: Yes (Other)
  Sender: FDA-Public Use
  Company Number: None

PATIENT
  Age: 53 Year
  Sex: Male
  Weight: 72.5755 kg

DRUGS (1)
  1. ZOSYN [Suspect]
     Indication: PANCREATIC PSEUDOCYST
     Dates: start: 20081028, end: 20081114

REACTIONS (6)
  - ALANINE AMINOTRANSFERASE INCREASED [None]
  - ASPARTATE AMINOTRANSFERASE INCREASED [None]
  - PANCREATIC PSEUDOCYST [None]
  - PLATELET COUNT DECREASED [None]
  - PYREXIA [None]
  - SMALL INTESTINAL OBSTRUCTION [None]
